FAERS Safety Report 21919664 (Version 3)
Quarter: 2023Q1

REPORT INFORMATION
  Report Type: Spontaneous
  Country: JP (occurrence: JP)
  Receive Date: 20230127
  Receipt Date: 20230217
  Transmission Date: 20230418
  Serious: Yes (Hospitalization, Other)
  Sender: FDA-Public Use
  Company Number: JP-GLAXOSMITHKLINE-JP2022JPN192689

PATIENT

DRUGS (11)
  1. VALTREX [Suspect]
     Active Substance: VALACYCLOVIR HYDROCHLORIDE
     Indication: Herpes zoster
     Dosage: 1000 MG, TID
     Route: 048
     Dates: start: 20211211
  2. LAMICTAL [Suspect]
     Active Substance: LAMOTRIGINE
     Indication: Mood swings
     Dosage: 25 MG, QD
     Route: 048
     Dates: start: 20211120, end: 20211203
  3. LAMICTAL [Suspect]
     Active Substance: LAMOTRIGINE
     Dosage: 50 MG
     Route: 048
     Dates: start: 20211204, end: 20211217
  4. LOXOPROFEN SODIUM [Suspect]
     Active Substance: LOXOPROFEN SODIUM
     Indication: Pain
     Dosage: 1 DF, TID
     Route: 048
     Dates: start: 20211211, end: 20211215
  5. REBAMIPIDE [Suspect]
     Active Substance: REBAMIPIDE
     Indication: Gastric mucosal lesion
     Dosage: 1 DF, TID
     Route: 048
     Dates: start: 20211211, end: 20211215
  6. LORAZEPAM [Suspect]
     Active Substance: LORAZEPAM
     Dosage: UNK
  7. LORAZEPAM [Concomitant]
     Active Substance: LORAZEPAM
     Indication: Depressed mood
     Dosage: 0.5 MG/DAY
     Route: 048
     Dates: start: 20210830
  8. BROMAZEPAM [Concomitant]
     Active Substance: BROMAZEPAM
     Indication: Depressed mood
     Dosage: 2 MG/DAY
     Route: 048
     Dates: start: 20211009, end: 20211217
  9. CYMBALTA [Concomitant]
     Active Substance: DULOXETINE HYDROCHLORIDE
     Indication: Depressed mood
     Dosage: 30 MG/DAY
     Route: 048
     Dates: start: 20210830, end: 20220319
  10. DORAL [Concomitant]
     Active Substance: QUAZEPAM
     Indication: Depressed mood
     Dosage: 15 MG/DAY
     Route: 048
     Dates: start: 20211106, end: 20220225
  11. OLANZAPINE [Concomitant]
     Active Substance: OLANZAPINE
     Indication: Depressed mood
     Dosage: 5 MG/DAY
     Route: 048
     Dates: start: 20211023, end: 20211217

REACTIONS (6)
  - Erythema multiforme [Recovered/Resolved]
  - Erythema [Recovered/Resolved]
  - Pigmentation disorder [Recovered/Resolved]
  - Herpes zoster [Recovered/Resolved]
  - Rash [Recovered/Resolved]
  - Treatment noncompliance [Unknown]

NARRATIVE: CASE EVENT DATE: 20211217
